FAERS Safety Report 22061084 (Version 1)
Quarter: 2023Q1

REPORT INFORMATION
  Report Type: Spontaneous
  Country: US (occurrence: US)
  Receive Date: 20230303
  Receipt Date: 20230303
  Transmission Date: 20230417
  Serious: Yes (Hospitalization, Other)
  Sender: FDA-Public Use
  Company Number: US-Covis Pharma Europe B.V.-2023COV00453

PATIENT
  Age: 82 Year
  Sex: Male

DRUGS (20)
  1. TUDORZA PRESSAIR [Suspect]
     Active Substance: ACLIDINIUM BROMIDE
     Indication: Product used for unknown indication
     Dosage: 1 ORAL INHALATION BID
  2. VENTOLIN [Concomitant]
     Active Substance: ALBUTEROL SULFATE
  3. ATORVASTATIN [Concomitant]
     Active Substance: ATORVASTATIN
  4. ATORVASTATIN [Concomitant]
     Active Substance: ATORVASTATIN
  5. BUSPIRONE [Concomitant]
     Active Substance: BUSPIRONE HYDROCHLORIDE
  6. BUSPIRONE [Concomitant]
     Active Substance: BUSPIRONE HYDROCHLORIDE
  7. CLOPIDOGREL BISULFATE [Concomitant]
     Active Substance: CLOPIDOGREL BISULFATE
  8. CLOPIDOGREL BISULFATE [Concomitant]
     Active Substance: CLOPIDOGREL BISULFATE
  9. CLOPIDOGREL BISULFATE [Concomitant]
     Active Substance: CLOPIDOGREL BISULFATE
  10. sublingual [Concomitant]
     Indication: Chest pain
  11. sublingual [Concomitant]
  12. sublingual [Concomitant]
  13. LOW DOSE ASPIRIN [Concomitant]
     Active Substance: ASPIRIN
  14. BENZONATATE [Concomitant]
     Active Substance: BENZONATATE
     Indication: Cough
  15. MUCINEX [Concomitant]
     Active Substance: GUAIFENESIN
  16. FOLATE SODIUM [Concomitant]
     Active Substance: FOLATE SODIUM
  17. super vitamin B complex [Concomitant]
  18. VITAMIN D3 [Concomitant]
     Active Substance: CHOLECALCIFEROL
  19. GINKGO [Concomitant]
     Active Substance: GINKGO
  20. ALBUTEROL [Concomitant]
     Active Substance: ALBUTEROL

REACTIONS (2)
  - Cerebrovascular accident [Unknown]
  - Product dose omission issue [Unknown]

NARRATIVE: CASE EVENT DATE: 20230101
